FAERS Safety Report 4897947-9 (Version None)
Quarter: 2006Q1

REPORT INFORMATION
  Report Type: 
  Country: None (occurrence: None)
  Receive Date: 20060201
  Receipt Date: 20060127
  Transmission Date: 20060701
  Serious: Yes (Death)
  Sender: FDA-Public Use
  Company Number: PHBS2006NO01566

PATIENT
  Age: 45 Year
  Sex: Male

DRUGS (3)
  1. LEPONEX [Suspect]
     Indication: SCHIZOPHRENIA
     Dosage: 400 MG/D
     Route: 048
     Dates: start: 19940101
  2. AKINETON [Concomitant]
     Dosage: 1 MG, TID
     Route: 048
  3. LAMICTAL [Concomitant]
     Dosage: 200 MG, QD
     Route: 048

REACTIONS (1)
  - SUDDEN CARDIAC DEATH [None]
